FAERS Safety Report 4831229-6 (Version None)
Quarter: 2005Q4

REPORT INFORMATION
  Report Type: 
  Country: None (occurrence: None)
  Receive Date: 20051116
  Receipt Date: 20051104
  Transmission Date: 20060501
  Serious: Yes (Other)
  Sender: FDA-Public Use
  Company Number: S05-USA-04589-01

PATIENT
  Age: 52 Year
  Sex: Female

DRUGS (1)
  1. LEXAPRO [Suspect]
     Indication: TRICHOTILLOMANIA
     Dosage: 20 MG QD PO
     Route: 048
     Dates: start: 20050201, end: 20050919

REACTIONS (2)
  - INTESTINAL INFARCTION [None]
  - INTESTINAL ISCHAEMIA [None]
